FAERS Safety Report 24601632 (Version 2)
Quarter: 2025Q2

REPORT INFORMATION
  Report Type: Spontaneous
  Country: US (occurrence: US)
  Receive Date: 20241111
  Receipt Date: 20250527
  Transmission Date: 20250717
  Serious: No
  Sender: ELI LILLY AND COMPANY
  Company Number: US-ELI_LILLY_AND_COMPANY-US202407013913

PATIENT
  Age: 24 Year
  Sex: Female

DRUGS (6)
  1. HUMALOG [Suspect]
     Active Substance: INSULIN LISPRO
     Indication: Type 1 diabetes mellitus
     Route: 065
     Dates: start: 2021
  2. HUMALOG [Suspect]
     Active Substance: INSULIN LISPRO
     Route: 065
  3. HUMALOG [Suspect]
     Active Substance: INSULIN LISPRO
     Route: 065
  4. INSULIN LISPRO [Suspect]
     Active Substance: INSULIN LISPRO
     Indication: Type 1 diabetes mellitus
     Route: 065
     Dates: start: 2020
  5. INSULIN LISPRO [Suspect]
     Active Substance: INSULIN LISPRO
     Route: 065
  6. LANTUS [Concomitant]
     Active Substance: INSULIN GLARGINE
     Indication: Product used for unknown indication

REACTIONS (4)
  - Drug ineffective [Unknown]
  - Blood glucose increased [Not Recovered/Not Resolved]
  - Blood glucose increased [Recovering/Resolving]
  - Product dose omission issue [Unknown]

NARRATIVE: CASE EVENT DATE: 20241107
